FAERS Safety Report 5179274-8 (Version None)
Quarter: 2006Q4

REPORT INFORMATION
  Report Type: 
  Country: None (occurrence: None)
  Receive Date: 20061219
  Receipt Date: 20061207
  Transmission Date: 20070319
  Serious: Yes (Life-Threatening)
  Sender: FDA-Public Use
  Company Number: PL-MERCK-0612POL00006

PATIENT
  Age: 18 Year
  Sex: Male
  Weight: 85 kg

DRUGS (1)
  1. SINGULAIR [Suspect]
     Indication: HYPERSENSITIVITY
     Route: 048
     Dates: start: 20061113, end: 20061120

REACTIONS (5)
  - ABDOMINAL PAIN [None]
  - BALANCE DISORDER [None]
  - DISORIENTATION [None]
  - DYSPNOEA [None]
  - HEADACHE [None]
